FAERS Safety Report 5912086-3 (Version None)
Quarter: 2008Q4

REPORT INFORMATION
  Report Type: 
  Country: None (occurrence: None)
  Receive Date: 20081007
  Receipt Date: 20081007
  Transmission Date: 20090506
  Serious: No
  Sender: FDA-Public Use
  Company Number: None

PATIENT
  Age: 62 Year
  Sex: Male

DRUGS (8)
  1. ROPINIROLE [Suspect]
     Indication: PARKINSON'S DISEASE
     Dosage: 1 MG TID PO
     Route: 048
     Dates: start: 20080701
  2. AMANTADINE HCL [Concomitant]
  3. AZILECT [Concomitant]
  4. FLORINET [Concomitant]
  5. STALEVO 100 [Concomitant]
  6. SINEMET [Concomitant]
  7. MIDODRINE [Concomitant]
  8. PROSCAR [Concomitant]

REACTIONS (1)
  - ORTHOSTATIC HYPOTENSION [None]
